FAERS Safety Report 18969568 (Version 1)
Quarter: 2021Q1

REPORT INFORMATION
  Report Type: Spontaneous
  Country: US (occurrence: US)
  Receive Date: 20210304
  Receipt Date: 20210304
  Transmission Date: 20210420
  Serious: No
  Sender: FDA-Public Use
  Company Number: US-PFIZER INC-2021188180

PATIENT
  Age: 81 Year
  Sex: Female

DRUGS (1)
  1. AMPICILLIN SODIUM/SULBACTAM SODIUM [Suspect]
     Active Substance: AMPICILLIN SODIUM\SULBACTAM SODIUM
     Dosage: UNK

REACTIONS (5)
  - Rash [Unknown]
  - Palatal swelling [Unknown]
  - Drug hypersensitivity [Unknown]
  - Tongue discomfort [Unknown]
  - Tongue disorder [Unknown]
